FAERS Safety Report 6725628-5 (Version None)
Quarter: 2010Q2

REPORT INFORMATION
  Report Type: 
  Country: None (occurrence: None)
  Receive Date: 20100514
  Receipt Date: 20100505
  Transmission Date: 20101027
  Serious: Yes (Hospitalization)
  Sender: FDA-Public Use
  Company Number: CN-ROCHE-701368

PATIENT
  Sex: Female

DRUGS (4)
  1. CAPECITABINE [Suspect]
     Dosage: DATE OF LAST DOSE PRIOR TO SAE: 20 FEBRUARY 2010.
     Route: 048
     Dates: start: 20100101
  2. CISPLATIN [Suspect]
     Dosage: FORM INFUSION.LAST DOSE PRIOR TO SAE: 09 APRIL 2010, TEMPORARILY INTERRUPTED.
     Route: 042
     Dates: start: 20100101, end: 20100503
  3. ASPIRIN [Concomitant]
     Dates: start: 20100503
  4. MORPHINE SULPHATE SR [Concomitant]
     Dates: start: 20100503

REACTIONS (9)
  - ANAEMIA [None]
  - CHILLS [None]
  - DEHYDRATION [None]
  - GENERAL PHYSICAL HEALTH DETERIORATION [None]
  - HYPONATRAEMIA [None]
  - HYPOPHAGIA [None]
  - MUCOSAL INFLAMMATION [None]
  - PLATELET COUNT DECREASED [None]
  - PYREXIA [None]
